FAERS Safety Report 13498892 (Version 1)
Quarter: 2017Q2

REPORT INFORMATION
  Report Type: Spontaneous
  Country: US (occurrence: US)
  Receive Date: 20170501
  Receipt Date: 20170501
  Transmission Date: 20170830
  Serious: Yes (Other)
  Sender: FDA-Public Use
  Company Number: PHHY2017US062837

PATIENT
  Age: 3 Year
  Sex: Male

DRUGS (2)
  1. ZOLEDRONIC ACID [Suspect]
     Active Substance: ZOLEDRONIC ACID
     Indication: BONE DENSITY DECREASED
     Dosage: 0.012 MG/KG, UNK, AT 22 MONTHS OF AGE
     Route: 042
  2. ZOLEDRONIC ACID [Suspect]
     Active Substance: ZOLEDRONIC ACID
     Dosage: 0.025 MG/KG, UNK, 29 AND 41 MONTHS OF AGE
     Route: 042

REACTIONS (3)
  - Tibia fracture [Unknown]
  - Ulna fracture [Unknown]
  - Drug administered to patient of inappropriate age [Unknown]
